FAERS Safety Report 10841807 (Version 1)
Quarter: 2015Q1

REPORT INFORMATION
  Report Type: Report from Study
  Country: US (occurrence: US)
  Receive Date: 20150220
  Receipt Date: 20150220
  Transmission Date: 20150721
  Serious: No
  Sender: FDA-Public Use
  Company Number: US-ABBVIE-14P-163-1265357-00

PATIENT
  Age: 48 Year
  Sex: Male

DRUGS (1)
  1. HUMIRA [Suspect]
     Active Substance: ADALIMUMAB
     Indication: CROHN^S DISEASE
     Dates: start: 201311

REACTIONS (4)
  - Drug ineffective [Unknown]
  - Cough [Unknown]
  - Nail avulsion [Unknown]
  - Arthralgia [Unknown]

NARRATIVE: CASE EVENT DATE: 201311
